FAERS Safety Report 10242124 (Version 2)
Quarter: 2014Q3

REPORT INFORMATION
  Report Type: Spontaneous
  Country: IT (occurrence: None)
  Receive Date: 20140613
  Receipt Date: 20140729
  Transmission Date: 20150326
  Serious: Yes (Hospitalization)
  Sender: FDA-Public Use
  Company Number: AUR-APL-2014-06348

PATIENT
  Age: 16 Year
  Sex: Female

DRUGS (2)
  1. SERTRALINE [Suspect]
     Active Substance: SERTRALINE HYDROCHLORIDE
     Indication: PRODUCT USED FOR UNKNOWN INDICATION
     Dosage: 30DF, TOTAL ORAL
     Route: 048
     Dates: start: 20130708, end: 20130708
  2. ALPRAZOLAM. [Suspect]
     Active Substance: ALPRAZOLAM
     Indication: PRODUCT USED FOR UNKNOWN INDICATION
     Dosage: 15 DF, TOTAL, ORAL
     Route: 048
     Dates: start: 20130708, end: 20130708

REACTIONS (3)
  - Drug abuse [None]
  - Bradyphrenia [None]
  - Tachycardia [None]

NARRATIVE: CASE EVENT DATE: 20130708
